FAERS Safety Report 10347418 (Version 2)
Quarter: 2014Q3

REPORT INFORMATION
  Report Type: Spontaneous
  Country: US (occurrence: US)
  Receive Date: 20140729
  Receipt Date: 20140729
  Transmission Date: 20150326
  Serious: Yes (Hospitalization, Disabling, Other)
  Sender: FDA-Public Use
  Company Number: US-009507513-2009SP023450

PATIENT
  Sex: Female
  Weight: 49.9 kg

DRUGS (1)
  1. NUVARING [Suspect]
     Active Substance: ETHINYL ESTRADIOL\ETONOGESTREL
     Indication: CONTRACEPTION
     Dosage: UNK
     Route: 067
     Dates: end: 20061126

REACTIONS (17)
  - Amnesia [Unknown]
  - Peripheral vascular disorder [Unknown]
  - Peripheral paralysis [Unknown]
  - Conjunctivitis [Unknown]
  - Nasopharyngitis [Unknown]
  - Headache [Unknown]
  - Rhinitis allergic [Unknown]
  - Epilepsy [Unknown]
  - Fatigue [Unknown]
  - Sinusitis [Unknown]
  - Convulsion [Unknown]
  - Transient ischaemic attack [Unknown]
  - Multiple sclerosis [Unknown]
  - Hyponatraemia [Unknown]
  - Cerebrovascular accident [Recovered/Resolved with Sequelae]
  - Anxiety [Unknown]
  - Depression [Unknown]

NARRATIVE: CASE EVENT DATE: 200609
